FAERS Safety Report 4810494-5 (Version None)
Quarter: 2005Q4

REPORT INFORMATION
  Report Type: 
  Country: None (occurrence: None)
  Receive Date: 20051026
  Receipt Date: 20051020
  Transmission Date: 20060501
  Serious: Yes (Other)
  Sender: FDA-Public Use
  Company Number: US-JNJFOC-20051004556

PATIENT
  Sex: Male

DRUGS (1)
  1. ELMIRON [Suspect]
     Indication: PROSTATITIS
     Route: 048

REACTIONS (1)
  - ATRIAL FIBRILLATION [None]
